FAERS Safety Report 13839507 (Version 1)
Quarter: 2017Q3

REPORT INFORMATION
  Report Type: Spontaneous
  Country: US (occurrence: US)
  Receive Date: 20170805
  Receipt Date: 20170805
  Transmission Date: 20171127
  Serious: Yes (Other)
  Sender: FDA-Public Use
  Company Number: None

PATIENT
  Age: 69 Year
  Sex: Male

DRUGS (16)
  1. HYOSCYAMINE. [Concomitant]
     Active Substance: HYOSCYAMINE
  2. METOPROLOL TARTRATE. [Concomitant]
     Active Substance: METOPROLOL TARTRATE
  3. OLMESARTAN [Concomitant]
     Active Substance: OLMESARTAN
  4. TESTOSTERONE. [Concomitant]
     Active Substance: TESTOSTERONE
  5. CLONIDINE. [Concomitant]
     Active Substance: CLONIDINE
  6. SOLFENACIN [Concomitant]
  7. ADALIMUMAB [Concomitant]
     Active Substance: ADALIMUMAB
  8. TAMSULOSIN [Concomitant]
     Active Substance: TAMSULOSIN
  9. VITAMIN B12 [Concomitant]
     Active Substance: CYANOCOBALAMIN
  10. CHOLECALCIFEROL [Concomitant]
     Active Substance: CHOLECALCIFEROL
  11. AMLODIPINE [Concomitant]
     Active Substance: AMLODIPINE BESYLATE
  12. MESALAMINE. [Concomitant]
     Active Substance: MESALAMINE
  13. LEUCOVORIN. [Concomitant]
     Active Substance: LEUCOVORIN
  14. PREDNISONE. [Concomitant]
     Active Substance: PREDNISONE
  15. MERCAPTOPURINE. [Suspect]
     Active Substance: MERCAPTOPURINE
     Indication: CROHN^S DISEASE
     Route: 048
     Dates: start: 20070101, end: 20161012
  16. LEVOTHYROXINE. [Concomitant]
     Active Substance: LEVOTHYROXINE

REACTIONS (9)
  - Anaemia [None]
  - Acute myeloid leukaemia [None]
  - Dyspnoea exertional [None]
  - Contusion [None]
  - Pyrexia [None]
  - Chest pain [None]
  - Therapy cessation [None]
  - Thrombocytopenia [None]
  - Tumour lysis syndrome [None]

NARRATIVE: CASE EVENT DATE: 20161024
